FAERS Safety Report 13276810 (Version 1)
Quarter: 2017Q1

REPORT INFORMATION
  Report Type: Spontaneous
  Country: US (occurrence: US)
  Receive Date: 20170228
  Receipt Date: 20170228
  Transmission Date: 20170428
  Serious: Yes (Other)
  Sender: FDA-Public Use
  Company Number: US-ELI_LILLY_AND_COMPANY-US201608000737

PATIENT
  Age: 43 Year
  Sex: Female

DRUGS (1)
  1. CYMBALTA [Suspect]
     Active Substance: DULOXETINE HYDROCHLORIDE
     Indication: FIBROMYALGIA
     Dosage: UNK, UNKNOWN
     Route: 065

REACTIONS (11)
  - Intentional product misuse [Unknown]
  - Affect lability [Recovering/Resolving]
  - Irritability [Not Recovered/Not Resolved]
  - Depression [Unknown]
  - Fatigue [Not Recovered/Not Resolved]
  - Drug withdrawal syndrome [Unknown]
  - Dysphoria [Recovering/Resolving]
  - Insomnia [Recovering/Resolving]
  - Dizziness [Not Recovered/Not Resolved]
  - Suicidal ideation [Recovered/Resolved]
  - Fibromyalgia [Unknown]

NARRATIVE: CASE EVENT DATE: 201607
